FAERS Safety Report 10041665 (Version 1)
Quarter: 2014Q1

REPORT INFORMATION
  Report Type: Spontaneous
  Country: PL (occurrence: None)
  Receive Date: 20140325
  Receipt Date: 20140325
  Transmission Date: 20141002
  Serious: Yes (Hospitalization)
  Sender: FDA-Public Use
  Company Number: 2014AP002139

PATIENT
  Sex: Female

DRUGS (5)
  1. CICLOSPORIN (CICLOSPORIN) [Suspect]
     Indication: PROPHYLAXIS AGAINST GRAFT VERSUS HOST DISEASE
     Dosage: UNKNOWN ; UNK ; UNK THERAPY DATES UNKNOWN
  2. ASPARAGINASE (ASPARAGINASE) (UNKNOWN) [Suspect]
     Indication: ACUTE LYMPHOCYTIC LEUKAEMIA
     Dosage: UNKNOWN ; UNKNOWN ; UNKNOWN
  3. METHYLPREDNISOLONE (METHYLPREDNISOLONE) [Suspect]
     Indication: ACUTE GRAFT VERSUS HOST DISEASE IN SKIN
  4. METHYLPREDNISOLONE (METHYLPREDNISOLONE) [Suspect]
     Indication: PULMONARY ALVEOLAR HAEMORRHAGE
  5. ETOPOSIDE (ETOPOSIDE) [Concomitant]

REACTIONS (2)
  - Diabetes mellitus [None]
  - Pancreatitis acute [None]
